FAERS Safety Report 16282256 (Version 4)
Quarter: 2019Q2

REPORT INFORMATION
  Report Type: Report from Study
  Country: NL (occurrence: NL)
  Receive Date: 20190507
  Receipt Date: 20190625
  Transmission Date: 20190711
  Serious: Yes (Death, Hospitalization, Other)
  Sender: FDA-Public Use
  Company Number: NL-EXELIXIS-XL18419020717

PATIENT
  Age: 62 Year
  Sex: Male

DRUGS (5)
  1. XL184 [Suspect]
     Active Substance: CABOZANTINIB
     Indication: OESOPHAGEAL CARCINOMA
     Dosage: 60 MG, QD
     Route: 048
     Dates: start: 20190404, end: 20190418
  2. DICLOFENAC [Concomitant]
     Active Substance: DICLOFENAC
  3. TEMAZEPAM. [Concomitant]
     Active Substance: TEMAZEPAM
  4. XL184 [Suspect]
     Active Substance: CABOZANTINIB
     Dosage: 60 MG, QD
     Route: 048
     Dates: end: 20190427
  5. PARACETAMOL [Concomitant]
     Active Substance: ACETAMINOPHEN

REACTIONS (5)
  - Pneumatosis intestinalis [Unknown]
  - C-reactive protein increased [Unknown]
  - Euthanasia [Fatal]
  - Abdominal pain [Not Recovered/Not Resolved]
  - Small intestinal stenosis [Unknown]

NARRATIVE: CASE EVENT DATE: 20190418
